FAERS Safety Report 21959140 (Version 1)
Quarter: 2023Q1

REPORT INFORMATION
  Report Type: Spontaneous
  Country: BR (occurrence: BR)
  Receive Date: 20230206
  Receipt Date: 20230206
  Transmission Date: 20230418
  Serious: Yes (Death)
  Sender: FDA-Public Use
  Company Number: BR-SERVIER-S22012473

PATIENT
  Age: 56 Year
  Sex: Female
  Weight: 49 kg

DRUGS (2)
  1. LONSURF [Suspect]
     Active Substance: TIPIRACIL HYDROCHLORIDE\TRIFLURIDINE
     Indication: Oesophageal carcinoma
     Dosage: 55 MG, BID, ON DAYS 1-5 AND 8-12 OF EACH 28-DAY CYCLE?CYCLE 1
     Route: 048
     Dates: start: 20221109, end: 20221130
  2. LONSURF [Suspect]
     Active Substance: TIPIRACIL HYDROCHLORIDE\TRIFLURIDINE
     Indication: Off label use
     Dosage: 55 MG, BID, ON DAYS 1-5 AND 8-12 OF EACH 28-DAY CYCLE
     Route: 048
     Dates: start: 20221109, end: 20221130

REACTIONS (4)
  - Malignant neoplasm progression [Fatal]
  - Weight decreased [Unknown]
  - Vomiting [Unknown]
  - Off label use [Recovered/Resolved]

NARRATIVE: CASE EVENT DATE: 20221101
